FAERS Safety Report 7667147-8 (Version None)
Quarter: 2011Q3

REPORT INFORMATION
  Report Type: 
  Country: None (occurrence: None)
  Receive Date: 20110806
  Receipt Date: 20110422
  Transmission Date: 20111222
  Serious: No
  Sender: FDA-Public Use
  Company Number: US-ABBOTT-11P-163-0721730-00

PATIENT
  Sex: Female

DRUGS (4)
  1. COQ-10 [Suspect]
     Indication: MUSCLE SPASMS
     Dates: start: 20110421
  2. NIASPAN [Suspect]
     Indication: BLOOD CHOLESTEROL INCREASED
     Dates: start: 20110411
  3. ASPIRIN [Concomitant]
     Indication: FLUSHING
     Dosage: 30 MINS BEFORE NIASPAN
  4. SIMVASTATIN [Concomitant]
     Indication: BLOOD CHOLESTEROL INCREASED

REACTIONS (1)
  - FLUSHING [None]
